FAERS Safety Report 8809096 (Version 3)
Quarter: 2012Q4

REPORT INFORMATION
  Report Type: 
  Country: US (occurrence: US)
  Receive Date: 20120926
  Receipt Date: 20121212
  Transmission Date: 20130627
  Serious: Yes (Hospitalization)
  Sender: FDA-Public Use
  Company Number: US-BAYER-2012-098975

PATIENT
  Age: 34 Year
  Sex: Female
  Weight: 106.12 kg

DRUGS (6)
  1. YAZ [Suspect]
     Dosage: UNK
     Dates: start: 20100428, end: 20100606
  2. AZITHROMYCIN [Concomitant]
     Dosage: 250 mg, UNK
     Dates: start: 20100317
  3. PREDNISONE [Concomitant]
     Dosage: 5 mg, UNK
     Dates: start: 20100317
  4. NEXIUM [Concomitant]
     Dosage: 40 mg, UNK
     Dates: start: 20100317
  5. ADVAIR [Concomitant]
  6. VENTOLIN [Concomitant]

REACTIONS (10)
  - Deep vein thrombosis [None]
  - Pain in extremity [None]
  - Fear [None]
  - Injury [None]
  - General physical health deterioration [None]
  - Anxiety [None]
  - Anhedonia [None]
  - Emotional distress [None]
  - Pain [None]
  - Hypersensitivity [None]
